FAERS Safety Report 8886942 (Version 1)
Quarter: 2012Q4

REPORT INFORMATION
  Report Type: 
  Country: RU (occurrence: RU)
  Receive Date: 20121105
  Receipt Date: 20121105
  Transmission Date: 20130627
  Serious: Yes (Death, Hospitalization)
  Sender: FDA-Public Use
  Company Number: PHHY2012RU079879

PATIENT
  Age: 58 Year
  Sex: Female

DRUGS (4)
  1. HALOPERIDOL [Suspect]
     Dosage: 10 mg, QD
     Route: 030
     Dates: start: 20100415
  2. HALOPERIDOL [Suspect]
     Dosage: 2.5 mg, QD
     Route: 030
     Dates: start: 20100416
  3. CHLORPROMAZINE [Suspect]
     Dosage: 25 mg, QD
     Route: 030
     Dates: start: 20100417
  4. LEVOMEPROMAZINE [Suspect]
     Dosage: 12.5 mg, QHS
     Route: 048
     Dates: start: 20100417

REACTIONS (12)
  - Hyperthermia [Fatal]
  - Neuroleptic malignant syndrome [Not Recovered/Not Resolved]
  - Dementia [Not Recovered/Not Resolved]
  - Aggression [Not Recovered/Not Resolved]
  - Negativism [Not Recovered/Not Resolved]
  - Hypertonia [Not Recovered/Not Resolved]
  - Urinary retention [Not Recovered/Not Resolved]
  - Delirium [Not Recovered/Not Resolved]
  - Sopor [Not Recovered/Not Resolved]
  - Coma [Unknown]
  - Agitation [Unknown]
  - Nuchal rigidity [Not Recovered/Not Resolved]
